FAERS Safety Report 24191809 (Version 3)
Quarter: 2024Q4

REPORT INFORMATION
  Report Type: Report from Study
  Country: US (occurrence: US)
  Receive Date: 20240809
  Receipt Date: 20241023
  Transmission Date: 20250115
  Serious: No
  Sender: ACADIA PHARMACEUTICALS
  Company Number: US-ACADIA PHARMACEUTICALS INC.-ACA-2024-TRF-003566

PATIENT
  Sex: Female

DRUGS (13)
  1. DAYBUE [Suspect]
     Active Substance: TROFINETIDE
     Indication: Rett syndrome
     Dosage: 60 MILLILITER, BID
     Route: 048
  2. DAYBUE [Suspect]
     Active Substance: TROFINETIDE
     Dosage: 30 MILLILITER, BID
     Route: 048
     Dates: start: 20240610
  3. DAYBUE [Suspect]
     Active Substance: TROFINETIDE
     Dosage: 60 MILLILITER, BID
     Route: 048
  4. TYLENOL [Concomitant]
     Active Substance: ACETAMINOPHEN
  5. VITAMIN D NOS [Concomitant]
     Active Substance: CHOLECALCIFEROL\ERGOCALCIFEROL
  6. DICYCLOMINE [Concomitant]
     Active Substance: DICYCLOMINE HYDROCHLORIDE
  7. LORATADINE [Concomitant]
     Active Substance: LORATADINE
  8. NAPROXEN [Concomitant]
     Active Substance: NAPROXEN
  9. sumet [Concomitant]
     Dosage: 1/20
  10. OMEPRAZOLE [Concomitant]
     Active Substance: OMEPRAZOLE
  11. ZOFRAN [Concomitant]
     Active Substance: ONDANSETRON HYDROCHLORIDE
  12. MIRALAX [Concomitant]
     Active Substance: POLYETHYLENE GLYCOL 3350
  13. SENNA LEAF [Concomitant]
     Active Substance: SENNA LEAF
     Dosage: PRN

REACTIONS (12)
  - Condition aggravated [Recovering/Resolving]
  - Gastrointestinal motility disorder [Recovering/Resolving]
  - Gastrointestinal hypomotility [Recovering/Resolving]
  - Flatulence [Recovering/Resolving]
  - Eructation [Recovering/Resolving]
  - Faeces soft [Recovering/Resolving]
  - Abdominal pain upper [Not Recovered/Not Resolved]
  - Retching [Not Recovered/Not Resolved]
  - Underdose [Not Recovered/Not Resolved]
  - Agitation [Unknown]
  - Abdominal discomfort [Unknown]
  - Nasopharyngitis [Not Recovered/Not Resolved]
